FAERS Safety Report 13122341 (Version 1)
Quarter: 2017Q1

REPORT INFORMATION
  Report Type: Spontaneous
  Country: IN (occurrence: IN)
  Receive Date: 20170117
  Receipt Date: 20170117
  Transmission Date: 20170428
  Serious: Yes (Other)
  Sender: FDA-Public Use
  Company Number: IN-MYLANLABS-2017M1001922

PATIENT

DRUGS (5)
  1. LABETALOL [Suspect]
     Active Substance: LABETALOL\LABETALOL HYDROCHLORIDE
     Indication: GENERALISED TONIC-CLONIC SEIZURE
     Dosage: FOLLOWED BY INFUSION
     Route: 040
  2. FOSPHENYTOIN [Suspect]
     Active Substance: FOSPHENYTOIN\FOSPHENYTOIN SODIUM
     Indication: GENERALISED TONIC-CLONIC SEIZURE
     Route: 040
  3. LABETALOL [Suspect]
     Active Substance: LABETALOL\LABETALOL HYDROCHLORIDE
     Dosage: 1-2 MG PER KG/HOUR
     Route: 041
  4. MAGNESIUM [Suspect]
     Active Substance: MAGNESIUM
     Indication: GENERALISED TONIC-CLONIC SEIZURE
     Dosage: 4MG FOLLOWED BY 5MG THROUGH IM ROUTE IN EACH GLUTEAL REGION
     Route: 042
  5. MAGNESIUM [Suspect]
     Active Substance: MAGNESIUM
     Dosage: 5MG; IN EACH GLUTEAL REGION
     Route: 030

REACTIONS (3)
  - Premature delivery [Unknown]
  - Premature separation of placenta [Unknown]
  - Exposure during pregnancy [Recovered/Resolved]
